FAERS Safety Report 18651891 (Version 3)
Quarter: 2022Q1

REPORT INFORMATION
  Report Type: Report from Study
  Country: US (occurrence: US)
  Receive Date: 20201223
  Receipt Date: 20220310
  Transmission Date: 20220423
  Serious: Yes (Other)
  Sender: FDA-Public Use
  Company Number: US-TAIHO ONCOLOGY INC-EU-2020-04344

PATIENT
  Age: 63 Year
  Sex: Female
  Weight: 55.7 kg

DRUGS (14)
  1. LONSURF [Suspect]
     Active Substance: TIPIRACIL HYDROCHLORIDE\TRIFLURIDINE
     Indication: Rectal cancer stage IV
     Dosage: CYCLE 1
     Route: 048
     Dates: start: 202007
  2. LONSURF [Suspect]
     Active Substance: TIPIRACIL HYDROCHLORIDE\TRIFLURIDINE
     Dosage: CYCLE 2
     Route: 048
     Dates: start: 20200817
  3. LONSURF [Suspect]
     Active Substance: TIPIRACIL HYDROCHLORIDE\TRIFLURIDINE
     Dosage: CYCLE 3
     Route: 048
     Dates: start: 20200907
  4. LONSURF [Suspect]
     Active Substance: TIPIRACIL HYDROCHLORIDE\TRIFLURIDINE
     Dosage: CYCLE 4
     Route: 048
     Dates: start: 20201005
  5. LONSURF [Suspect]
     Active Substance: TIPIRACIL HYDROCHLORIDE\TRIFLURIDINE
     Dosage: CYCLE 5
     Route: 048
     Dates: start: 20201102, end: 202101
  6. SODIUM CHLORIDE [Concomitant]
     Active Substance: SODIUM CHLORIDE
     Dosage: 25 ML/HR
     Route: 042
  7. DEXTROSE [Concomitant]
     Active Substance: DEXTROSE
     Dosage: 25 ML/HR
     Route: 042
  8. BENADRYL [Concomitant]
     Active Substance: DIPHENHYDRAMINE HYDROCHLORIDE
  9. SOLU-MEDROL [Concomitant]
     Active Substance: METHYLPREDNISOLONE SODIUM SUCCINATE
  10. PEPCID [Concomitant]
     Active Substance: FAMOTIDINE
  11. ADRENALIN [Concomitant]
     Active Substance: EPINEPHRINE
     Indication: Anaphylactic reaction
     Dosage: 1 MG/ML
  12. OXYGEN [Concomitant]
     Active Substance: OXYGEN
     Dosage: FLOW RATE (L/MIN): 1 TO 6 L/MIN
     Route: 045
  13. ATROPINE [Concomitant]
     Active Substance: ATROPINE
  14. CAMPTOSAR [Concomitant]
     Active Substance: IRINOTECAN HYDROCHLORIDE
     Dosage: 140 MG IN DEXTROSE S % IN WATER (D5W) 500 ML CHEMO IVPB.

REACTIONS (4)
  - Disease progression [Unknown]
  - Fatigue [Unknown]
  - Nausea [Unknown]
  - Abdominal pain [Unknown]

NARRATIVE: CASE EVENT DATE: 20201202
